FAERS Safety Report 23069566 (Version 1)
Quarter: 2023Q4

REPORT INFORMATION
  Report Type: Spontaneous
  Country: US (occurrence: US)
  Receive Date: 20231016
  Receipt Date: 20231016
  Transmission Date: 20240110
  Serious: Yes (Death, Life-Threatening, Other)
  Sender: FDA-Public Use
  Company Number: US-PFIZER INC-PV202300166148

PATIENT
  Age: 22 Year
  Sex: Female

DRUGS (4)
  1. MAGNESIUM SULFATE [Suspect]
     Active Substance: MAGNESIUM SULFATE
     Indication: Hypertension
     Dosage: UNK
     Route: 041
  2. MAGNESIUM SULFATE [Suspect]
     Active Substance: MAGNESIUM SULFATE
     Indication: Generalised tonic-clonic seizure
  3. NICARDIPINE [Suspect]
     Active Substance: NICARDIPINE
     Indication: Generalised tonic-clonic seizure
     Dosage: UNK
     Route: 041
  4. NICARDIPINE [Suspect]
     Active Substance: NICARDIPINE
     Indication: Hypertension

REACTIONS (1)
  - Drug ineffective [Fatal]
